FAERS Safety Report 21831265 (Version 1)
Quarter: 2023Q1

REPORT INFORMATION
  Report Type: Spontaneous
  Country: US (occurrence: US)
  Receive Date: 20230106
  Receipt Date: 20230106
  Transmission Date: 20230418
  Serious: No
  Sender: FDA-Public Use
  Company Number: US-PFIZER INC-202300004857

PATIENT
  Age: 75 Year
  Sex: Female

DRUGS (1)
  1. IBRANCE [Suspect]
     Active Substance: PALBOCICLIB
     Dosage: 125 MG, TAKE 1 TABLET DAILY ON DAYS 1 THROUGH 21
     Dates: start: 20221114

REACTIONS (3)
  - Nasopharyngitis [Not Recovered/Not Resolved]
  - Epistaxis [Unknown]
  - Fatigue [Not Recovered/Not Resolved]
